FAERS Safety Report 10898795 (Version 2)
Quarter: 2015Q2

REPORT INFORMATION
  Report Type: Report from Study
  Country: JP (occurrence: JP)
  Receive Date: 20150309
  Receipt Date: 20150427
  Transmission Date: 20150821
  Serious: Yes (Hospitalization)
  Sender: FDA-Public Use
  Company Number: JP-EISAI MEDICAL RESEARCH-EC-2015-004625

PATIENT
  Age: 80 Year
  Sex: Female

DRUGS (4)
  1. FENILENE [Concomitant]
  2. JU-KAMA [Concomitant]
     Active Substance: MAGNESIUM OXIDE
  3. TAKEPRON [Concomitant]
     Active Substance: LANSOPRAZOLE
  4. ARICEPT [Suspect]
     Active Substance: DONEPEZIL HYDROCHLORIDE
     Indication: DEMENTIA ALZHEIMER^S TYPE
     Route: 048
     Dates: start: 20130727, end: 20130803

REACTIONS (2)
  - Decreased appetite [Recovered/Resolved]
  - Dehydration [Recovering/Resolving]

NARRATIVE: CASE EVENT DATE: 20130801
